FAERS Safety Report 4970320-0 (Version None)
Quarter: 2006Q2

REPORT INFORMATION
  Report Type: 
  Country: None (occurrence: None)
  Receive Date: 20060412
  Receipt Date: 20060308
  Transmission Date: 20061013
  Serious: Yes (Hospitalization, Other)
  Sender: FDA-Public Use
  Company Number: PHFR2006GB01092

PATIENT
  Age: 38 Year
  Sex: Female

DRUGS (4)
  1. OMEPRAZOLE [Concomitant]
     Dosage: 40MG/DAY
     Route: 048
     Dates: start: 20040801
  2. TRAMADOL HCL [Concomitant]
     Indication: PAIN
     Dosage: 50MG/DAY
     Route: 048
     Dates: start: 20040801
  3. LACTULOSE [Concomitant]
     Indication: CONSTIPATION
     Dosage: 5-10ML/DAY
     Route: 048
     Dates: start: 20040801
  4. GLEEVEC [Suspect]
     Indication: GASTROINTESTINAL STROMAL TUMOUR
     Dosage: 400MG/DAY
     Route: 048
     Dates: start: 20040630

REACTIONS (7)
  - ABDOMINAL SINUS REPAIR [None]
  - ABDOMINAL WALL OPERATION [None]
  - GASTROINTESTINAL FISTULA [None]
  - ILEOSTOMY CLOSURE [None]
  - IMPAIRED HEALING [None]
  - INTESTINAL PERFORATION [None]
  - SKIN LESION EXCISION [None]
